FAERS Safety Report 22389073 (Version 1)
Quarter: 2023Q2

REPORT INFORMATION
  Report Type: Spontaneous
  Country: FR (occurrence: FR)
  Receive Date: 20230531
  Receipt Date: 20230531
  Transmission Date: 20230722
  Serious: Yes (Life-Threatening, Hospitalization, Other)
  Sender: FDA-Public Use
  Company Number: FR-ELI_LILLY_AND_COMPANY-FR202305015994

PATIENT
  Age: 71 Year
  Sex: Male

DRUGS (8)
  1. GEMCITABINE HYDROCHLORIDE [Interacting]
     Active Substance: GEMCITABINE HYDROCHLORIDE
     Indication: Adenocarcinoma pancreas
     Dosage: 1000 MG/M2, CYCLICAL
     Route: 065
     Dates: start: 201906
  2. PACLITAXEL [Interacting]
     Active Substance: PACLITAXEL
     Indication: Adenocarcinoma pancreas
     Dosage: 125 MG/M2, CYCLICAL
     Route: 065
     Dates: start: 201906
  3. ASPARAGINASE [Suspect]
     Active Substance: ASPARAGINASE
     Indication: Adenocarcinoma pancreas
     Dosage: 100 MG/M2, CYCLICAL
     Route: 065
     Dates: start: 201906
  4. VALSARTAN [Concomitant]
     Active Substance: VALSARTAN
     Dosage: UNK UNK, UNKNOWN
     Route: 065
  5. PANCREATIN [Concomitant]
     Active Substance: PANCRELIPASE
     Dosage: UNK UNK, UNKNOWN
     Route: 065
  6. FUROSEMIDE [Concomitant]
     Active Substance: FUROSEMIDE
     Dosage: UNK UNK, UNKNOWN
     Route: 065
  7. BISOPROLOL [Concomitant]
     Active Substance: BISOPROLOL
     Dosage: UNK UNK, UNKNOWN
     Route: 065
  8. PENICILLIN V [Concomitant]
     Active Substance: PENICILLIN V
     Dosage: UNK UNK, UNKNOWN
     Route: 065

REACTIONS (8)
  - Thrombotic microangiopathy [Recovered/Resolved]
  - Neurotoxicity [Recovered/Resolved]
  - Hypertension [Recovered/Resolved]
  - Asthenia [Unknown]
  - Alopecia [Unknown]
  - Neutropenia [Unknown]
  - Drug interaction [Recovered/Resolved]
  - Off label use [Unknown]

NARRATIVE: CASE EVENT DATE: 20190601
